FAERS Safety Report 14312293 (Version 1)
Quarter: 2017Q4

REPORT INFORMATION
  Report Type: Spontaneous
  Country: US (occurrence: US)
  Receive Date: 20171220
  Receipt Date: 20171220
  Transmission Date: 20180321
  Serious: Yes (Hospitalization)
  Sender: FDA-Public Use
  Company Number: None

PATIENT
  Age: 81 Year
  Sex: Male
  Weight: 111.6 kg

DRUGS (2)
  1. LEUPROLIDE ACETATE. [Suspect]
     Active Substance: LEUPROLIDE ACETATE
     Dates: end: 20110804
  2. CASODEX [Suspect]
     Active Substance: BICALUTAMIDE
     Dates: end: 20120110

REACTIONS (2)
  - Cardiac failure congestive [None]
  - Atrioventricular block first degree [None]

NARRATIVE: CASE EVENT DATE: 20170625
